FAERS Safety Report 4273875-7 (Version None)
Quarter: 2004Q1

REPORT INFORMATION
  Report Type: 
  Country: None (occurrence: None)
  Receive Date: 20040115
  Receipt Date: 20011028
  Transmission Date: 20041129
  Serious: Yes (Hospitalization)
  Sender: FDA-Public Use
  Company Number: 2000-FF-S0551 (2)

PATIENT
  Age: 8 Year
  Sex: Male

DRUGS (8)
  1. VIRAMUNE [Suspect]
     Indication: HIV INFECTION
     Dosage: 260 MG (MG, 2X4MG/KG/DAY) PO
     Route: 048
     Dates: start: 19990113, end: 19991028
  2. AGENERASE (SP) [Concomitant]
  3. ZERIT [Concomitant]
  4. HIVID (ZALCITABINE) (TA) [Concomitant]
  5. CYMEVAN (GANCICLOVIR SODIUM) [Concomitant]
  6. BACTRIM [Concomitant]
  7. AMPHOTERICINE B (AMPHOTERICINE B, LIPOSOME) [Concomitant]
  8. SPORANOX [Concomitant]

REACTIONS (8)
  - CYTOLYTIC HEPATITIS [None]
  - CYTOMEGALOVIRUS INFECTION [None]
  - EPSTEIN-BARR VIRUS INFECTION [None]
  - OESOPHAGEAL CANDIDIASIS [None]
  - PANCREATITIS ACUTE [None]
  - PYREXIA [None]
  - RASH [None]
  - VIRAL LOAD INCREASED [None]
